FAERS Safety Report 10932099 (Version 2)
Quarter: 2015Q3

REPORT INFORMATION
  Report Type: Spontaneous
  Country: US (occurrence: None)
  Receive Date: 20150129
  Receipt Date: 20150629
  Transmission Date: 20151125
  Serious: No
  Sender: FDA-Public Use
  Company Number: A-US2014-105452

PATIENT
  Age: 24 Year
  Sex: Female

DRUGS (1)
  1. OPSUMIT [Suspect]
     Active Substance: MACITENTAN
     Indication: PULMONARY ARTERIAL HYPERTENSION
     Route: 048
     Dates: start: 20140818

REACTIONS (7)
  - Myalgia [None]
  - Pyrexia [None]
  - Nasal congestion [None]
  - Influenza like illness [None]
  - Vomiting [None]
  - Rash generalised [None]
  - Pain [None]

NARRATIVE: CASE EVENT DATE: 20140907
